FAERS Safety Report 5187698-8 (Version None)
Quarter: 2006Q4

REPORT INFORMATION
  Report Type: 
  Country: None (occurrence: None)
  Receive Date: 20061221
  Receipt Date: 20061214
  Transmission Date: 20070319
  Serious: Yes (Other)
  Sender: FDA-Public Use
  Company Number: PHEH2006US15290

PATIENT
  Age: 72 Year
  Sex: Male
  Weight: 72.562 kg

DRUGS (6)
  1. LIPITOR [Concomitant]
     Dosage: 10 MG, QHS
  2. PLAVIX [Concomitant]
     Dosage: 75 MG, QD
  3. NORVASC [Concomitant]
     Dosage: 5 MG, QD
  4. LISINOPRIL [Concomitant]
     Dosage: 10 MG, QD
  5. DIOVAN [Suspect]
     Indication: HYPERTENSION
     Dosage: 80 MG, QD
     Dates: end: 20061021
  6. DIOVAN [Suspect]
     Dosage: 80 MG, QD
     Dates: start: 20061206

REACTIONS (3)
  - ANGIOPLASTY [None]
  - DEPRESSION [None]
  - FATIGUE [None]
